FAERS Safety Report 23386476 (Version 1)
Quarter: 2024Q1

REPORT INFORMATION
  Report Type: Spontaneous
  Country: NL (occurrence: NL)
  Receive Date: 20240110
  Receipt Date: 20240110
  Transmission Date: 20240409
  Serious: Yes (Hospitalization)
  Sender: FDA-Public Use
  Company Number: None

PATIENT
  Age: 63 Year
  Sex: Female

DRUGS (1)
  1. SIMVASTATIN [Suspect]
     Active Substance: SIMVASTATIN
     Indication: Hypercholesterolaemia
     Dosage: TABLET FO 40MG?1X PER DAY 1 PIECE
     Dates: start: 20220607, end: 20220614

REACTIONS (3)
  - Muscle spasms [Unknown]
  - Fall [Unknown]
  - Muscular weakness [Unknown]
